FAERS Safety Report 25289409 (Version 1)
Quarter: 2025Q2

REPORT INFORMATION
  Report Type: Spontaneous
  Country: FR (occurrence: FR)
  Receive Date: 20250509
  Receipt Date: 20250509
  Transmission Date: 20250716
  Serious: Yes (Other)
  Sender: JOHNSON AND JOHNSON
  Company Number: FR-JNJFOC-20250234295

PATIENT
  Age: 54 Year
  Sex: Female
  Weight: 60 kg

DRUGS (10)
  1. RYBREVANT [Suspect]
     Active Substance: AMIVANTAMAB-VMJW
     Indication: Non-small cell lung cancer metastatic
     Route: 065
     Dates: start: 20250212
  2. DOXYCYCLINE [Concomitant]
     Active Substance: DOXYCYCLINE
     Indication: Skin disorder
     Route: 048
     Dates: end: 20250210
  3. MEDROL [METHYLPREDNISOLONE SODIUM PHOSPHATE] [Concomitant]
     Indication: Premedication
     Route: 048
     Dates: end: 20250210
  4. EMEND [Concomitant]
     Active Substance: APREPITANT
     Indication: Vomiting
     Route: 048
     Dates: end: 20250412
  5. IRBESARTAN [Concomitant]
     Active Substance: IRBESARTAN
     Indication: Hypertension
     Route: 048
  6. METHOTREXATE [Concomitant]
     Active Substance: METHOTREXATE
     Indication: Rheumatoid arthritis
  7. CYANOCOBALAMIN [Concomitant]
     Active Substance: CYANOCOBALAMIN
     Indication: Haematotoxicity
     Route: 030
     Dates: start: 20250205
  8. EMLA [Concomitant]
     Active Substance: LIDOCAINE\PRILOCAINE
     Indication: Product used for unknown indication
     Dates: start: 20250212
  9. FOLIC ACID [Concomitant]
     Active Substance: FOLIC ACID
     Indication: Haematotoxicity
     Route: 048
     Dates: start: 20250205
  10. EXFORGE [Concomitant]
     Active Substance: AMLODIPINE BESYLATE\VALSARTAN
     Indication: Hypertension

REACTIONS (5)
  - Infusion related reaction [Unknown]
  - Loss of consciousness [Unknown]
  - Hyperhidrosis [Unknown]
  - Malaise [Unknown]
  - Hypotension [Unknown]

NARRATIVE: CASE EVENT DATE: 20250212
